FAERS Safety Report 8310961 (Version 4)
Quarter: 2014Q1

REPORT INFORMATION
  Report Type: Report from Study
  Country: US (occurrence: US)
  Receive Date: 20111226
  Receipt Date: 20140116
  Transmission Date: 20141002
  Serious: Yes (Other)
  Sender: FDA-Public Use
  Company Number: PHEH2009US18152

PATIENT
  Sex: Female

DRUGS (6)
  1. DIOVAN [Suspect]
     Dosage: 160 MG, BID
     Route: 048
  2. CARDURA [Suspect]
     Dosage: 1 MG, BID
     Dates: start: 200911
  3. LASIX [Suspect]
  4. DIURETICS [Suspect]
  5. ASPIRIN ^BAYER^ [Concomitant]
     Dosage: 81 MG, UNK
  6. OXYGEN THERAPY [Concomitant]

REACTIONS (8)
  - Spinal fracture [Unknown]
  - Fall [Unknown]
  - Dry mouth [Unknown]
  - Nervousness [Unknown]
  - Hernia [Unknown]
  - Dizziness [Unknown]
  - Dyspnoea [Unknown]
  - Drug ineffective [Unknown]
